FAERS Safety Report 8917523 (Version 2)
Quarter: 2012Q4

REPORT INFORMATION
  Report Type: 
  Country: JP (occurrence: JP)
  Receive Date: 20121120
  Receipt Date: 20121226
  Transmission Date: 20130627
  Serious: Yes (Hospitalization)
  Sender: FDA-Public Use
  Company Number: JP-SANOFI-AVENTIS-2012SA084727

PATIENT
  Age: 75 Year
  Sex: Male
  Weight: 56 kg

DRUGS (10)
  1. TAXOTERE [Suspect]
     Indication: PROSTATE CANCER
     Dosage: frequency: twice every three weeks
     Route: 041
     Dates: start: 20121002, end: 20121030
  2. ESTRACYT [Concomitant]
  3. CORTICOSTEROIDS [Concomitant]
  4. GASTER [Concomitant]
     Indication: DUODENAL ULCER
     Route: 048
  5. MITIGLINIDE [Concomitant]
     Indication: DIABETES MELLITUS
     Route: 048
  6. MARZULENE S [Concomitant]
     Indication: GASTRITIS
     Route: 048
  7. ALUMINIUM HYDROXIDE [Concomitant]
     Indication: GASTRITIS
     Route: 048
  8. DEXAMETHASONE [Concomitant]
     Indication: PROSTATE CANCER
     Route: 048
     Dates: start: 20121001
  9. OXYCONTIN [Concomitant]
     Indication: CANCER PAIN
     Route: 048
     Dates: start: 20120925
  10. ACETAMINOPHEN [Concomitant]
     Indication: CANCER PAIN
     Route: 048
     Dates: start: 20120925

REACTIONS (1)
  - Interstitial lung disease [Recovering/Resolving]
